FAERS Safety Report 6579949-X (Version None)
Quarter: 2010Q1

REPORT INFORMATION
  Report Type: 
  Country: None (occurrence: None)
  Receive Date: 20100212
  Receipt Date: 20100203
  Transmission Date: 20100710
  Serious: Yes (Death, Other)
  Sender: FDA-Public Use
  Company Number: US-PFIZER INC-2008070500

PATIENT
  Sex: Female

DRUGS (1)
  1. LIPITOR [Suspect]
     Dosage: 20 MG, 1X/DAY
     Route: 048
     Dates: start: 19990616

REACTIONS (3)
  - DEATH [None]
  - GALLBLADDER CANCER [None]
  - OESOPHAGEAL OPERATION [None]
